FAERS Safety Report 4692277-2 (Version None)
Quarter: 2005Q2

REPORT INFORMATION
  Report Type: 
  Country: None (occurrence: None)
  Receive Date: 20050616
  Receipt Date: 20050509
  Transmission Date: 20051028
  Serious: Yes (Other)
  Sender: FDA-Public Use
  Company Number: EWC050543957

PATIENT
  Age: 53 Year
  Sex: Male

DRUGS (5)
  1. HUMULIN N [Suspect]
     Indication: DIABETES MELLITUS NON-INSULIN-DEPENDENT
     Dosage: 10 IU/1 DAY
     Dates: start: 20030101
  2. HUMULIN R [Suspect]
     Indication: DIABETES MELLITUS NON-INSULIN-DEPENDENT
     Dosage: 17 IU/3 DAY
     Dates: start: 20030101
  3. CYNT (MOXONIDINE) [Concomitant]
  4. EDNYT (ENALAPRIL MALEATE) [Concomitant]
  5. DOXIUM (CALCIUM DOBESILATE) [Concomitant]

REACTIONS (13)
  - ABASIA [None]
  - ADVERSE EVENT [None]
  - AMNESIA [None]
  - BACK DISORDER [None]
  - BLOOD GLUCOSE FLUCTUATION [None]
  - DEVICE FAILURE [None]
  - FATIGUE [None]
  - HYPOGLYCAEMIA [None]
  - LOSS OF CONSCIOUSNESS [None]
  - MEDICAL DEVICE COMPLICATION [None]
  - NERVE COMPRESSION [None]
  - PHARMACEUTICAL PRODUCT COMPLAINT [None]
  - UNDERDOSE [None]
